FAERS Safety Report 8061292-3 (Version None)
Quarter: 2012Q1

REPORT INFORMATION
  Report Type: 
  Country: None (occurrence: None)
  Receive Date: 20120120
  Receipt Date: 20110815
  Transmission Date: 20120608
  Serious: No
  Sender: FDA-Public Use
  Company Number: US-ALLERGAN-1110980US

PATIENT
  Age: 75 Year
  Sex: Female

DRUGS (2)
  1. REFRESH PLUS [Concomitant]
     Indication: DRY EYE
     Dosage: 1 GTT, Q4HR
     Route: 047
  2. RESTASIS [Suspect]
     Indication: DRY EYE
     Dosage: 2 GTT, BID
     Route: 047
     Dates: start: 20110810

REACTIONS (4)
  - VISION BLURRED [None]
  - OCULAR HYPERAEMIA [None]
  - EYE IRRITATION [None]
  - FOREIGN BODY SENSATION IN EYES [None]
